FAERS Safety Report 6674983-3 (Version None)
Quarter: 2010Q2

REPORT INFORMATION
  Report Type: 
  Country: None (occurrence: None)
  Receive Date: 20100409
  Receipt Date: 20100330
  Transmission Date: 20101027
  Serious: Yes (Other)
  Sender: FDA-Public Use
  Company Number: US-B.I. PHARMACEUTICALS,INC./RIDGEFIELD-2010-DE-01938GD

PATIENT
  Age: 17 Year
  Sex: Male
  Weight: 63 kg

DRUGS (5)
  1. CLONIDINE [Suspect]
     Indication: INSOMNIA
     Dosage: 0.1 MG
  2. CONCERTA [Suspect]
     Indication: ATTENTION DEFICIT/HYPERACTIVITY DISORDER
     Dosage: 90 MG
  3. CONCERTA [Suspect]
     Dosage: 54 MG
  4. CONCERTA [Suspect]
     Dosage: 72 MG
  5. ATOMOXETINE HCL [Suspect]
     Dosage: 18 MG

REACTIONS (4)
  - DEPRESSION [None]
  - DISTURBANCE IN ATTENTION [None]
  - IMPULSIVE BEHAVIOUR [None]
  - PETIT MAL EPILEPSY [None]
